FAERS Safety Report 17277828 (Version 1)
Quarter: 2020Q1

REPORT INFORMATION
  Report Type: Spontaneous
  Country: US (occurrence: US)
  Receive Date: 20200116
  Receipt Date: 20200116
  Transmission Date: 20200409
  Serious: Yes (Hospitalization, Other)
  Sender: FDA-Public Use
  Company Number: NVSC2020US008061

PATIENT
  Age: 56 Year
  Sex: Female

DRUGS (2)
  1. PREDNISONE. [Suspect]
     Active Substance: PREDNISONE
     Indication: PROPHYLAXIS
     Dosage: UNK
     Route: 065
  2. MEPOLIZUMAB [Suspect]
     Active Substance: MEPOLIZUMAB
     Indication: PROPHYLAXIS
     Dosage: UNK
     Route: 065

REACTIONS (4)
  - Cushing^s syndrome [Unknown]
  - Withdrawal syndrome [Unknown]
  - Pneumonia [Recovered/Resolved]
  - Osteoporosis [Unknown]
